FAERS Safety Report 8776731 (Version 1)
Quarter: 2012Q4

REPORT INFORMATION
  Report Type: 
  Country: US (occurrence: US)
  Receive Date: 20120910
  Receipt Date: 20120910
  Transmission Date: 20130627
  Serious: Yes (Other)
  Sender: FDA-Public Use
  Company Number: US-PFIZER INC-2012221477

PATIENT
  Age: 42 Year
  Sex: Male
  Weight: 104 kg

DRUGS (8)
  1. EFFEXOR XR [Suspect]
     Indication: DEPRESSION
     Dosage: 300 mg, daily
     Route: 048
     Dates: start: 201208, end: 201208
  2. PRISTIQ [Suspect]
     Indication: DEPRESSION
     Dosage: 250 mg, 2x/day
     Dates: start: 201209
  3. XANAX [Concomitant]
     Dosage: 0.5 mg, UNK
  4. TRAMADOL [Concomitant]
     Dosage: UNK
  5. TRAZODONE [Concomitant]
     Dosage: 50 mg, UNK
  6. OXYCODONE [Concomitant]
     Indication: PAIN
     Dosage: 5 mg, UNK
  7. OXYCONTIN [Concomitant]
     Indication: PAIN
     Dosage: 10 mg, UNK
  8. SKELAXIN [Concomitant]
     Indication: PAIN
     Dosage: 800 mg, UNK

REACTIONS (1)
  - Suicidal ideation [Not Recovered/Not Resolved]
